FAERS Safety Report 5589853-1 (Version None)
Quarter: 2008Q1

REPORT INFORMATION
  Report Type: 
  Country: None (occurrence: None)
  Receive Date: 20080114
  Receipt Date: 20071231
  Transmission Date: 20080703
  Serious: Yes (Other)
  Sender: FDA-Public Use
  Company Number: GB-MERCK-0801USA00276

PATIENT
  Age: 69 Year
  Sex: Female

DRUGS (5)
  1. PRINIVIL [Suspect]
     Indication: HYPERTENSION
     Route: 048
     Dates: start: 20070126, end: 20070226
  2. PRINIVIL [Suspect]
     Route: 048
  3. BERK-CO-TENIDONE [Concomitant]
     Indication: HYPERTENSION
     Route: 065
  4. METROGEL [Concomitant]
     Indication: ROSACEA
     Route: 065
  5. OMEPRAZOLE [Concomitant]
     Indication: REFLUX OESOPHAGITIS
     Route: 065

REACTIONS (1)
  - COLITIS MICROSCOPIC [None]
